FAERS Safety Report 8417692 (Version 2)
Quarter: 2013Q2

REPORT INFORMATION
  Report Type: Spontaneous
  Country: US (occurrence: None)
  Receive Date: 20111227
  Receipt Date: 20121031
  Transmission Date: 20140414
  Serious: Yes (Other)
  Sender: FDA-Public Use
  Company Number: PHEH2011US07557

PATIENT
  Sex: Female

DRUGS (16)
  1. GILENYA [Suspect]
     Dosage: 0.5 MG, QD, ORAL
     Route: 048
  2. CYMBALTA [Concomitant]
  3. XANAX [Concomitant]
  4. SOMA [Concomitant]
  5. ROXICODONE [Concomitant]
  6. SYNTHROID [Concomitant]
  7. DEPLIN (CALCIUM L-MEHTYLFOATE) [Concomitant]
  8. FIBER (POLYCARBOPHIL CALCIUM) [Concomitant]
  9. STOOL SOFTENER (DOCUSATE SODIUM) [Concomitant]
  10. OXYCONTIN [Concomitant]
  11. KLONOPIN (CLONAZEPAM) (TABLETS) [Concomitant]
  12. REMERON (MIRTAZAPINE) [Concomitant]
  13. ADDERALL (AMFETAMINE ASPARTRATE, AMFETAMINE SULFATE, DEXAMFETAMINE SACCHARATE, DEXAMFETAMINE SULFATE) [Concomitant]
  14. VITAMIN D (ERGOCALCIFEROL) [Concomitant]
  15. HAIR/SKIN/ NAILS TAB [Concomitant]
  16. MULTIVITAMINS (ASCORBIC ACID, ERGOCALCIFEROL, FOLIC ACID, NICOTINAMIDE, PANTHENOL, RETINOL, RIBOFLAVIN, THIAMINE HYDROCHLORIDE) [Concomitant]

REACTIONS (4)
  - CONSTIPATION [None]
  - Muscular weakness [None]
  - Burning sensation [None]
  - Pain [None]
